FAERS Safety Report 19029236 (Version 1)
Quarter: 2021Q1

REPORT INFORMATION
  Report Type: Spontaneous
  Country: ES (occurrence: ES)
  Receive Date: 20210318
  Receipt Date: 20210318
  Transmission Date: 20210420
  Serious: Yes (Other)
  Sender: FDA-Public Use
  Company Number: ES-ELI_LILLY_AND_COMPANY-ES202103004337

PATIENT
  Age: 55 Year
  Sex: Male
  Weight: 78 kg

DRUGS (5)
  1. INSULIN LISPRO [Suspect]
     Active Substance: INSULIN LISPRO
     Indication: TYPE 2 DIABETES MELLITUS
     Dosage: UNK UNK, UNKNOWN
     Route: 058
  2. NOVORAPID [Concomitant]
     Active Substance: INSULIN ASPART
     Indication: DIABETES MELLITUS INADEQUATE CONTROL
  3. INSULIN GLARGINE [Suspect]
     Active Substance: INSULIN GLARGINE
     Dosage: 24 INTERNATIONAL UNIT, UNKNOWN
     Route: 058
  4. INSULIN GLARGINE [Suspect]
     Active Substance: INSULIN GLARGINE
     Indication: TYPE 2 DIABETES MELLITUS
     Dosage: 18 INTERNATIONAL UNIT, UNKNOWN
     Route: 058
     Dates: start: 2016
  5. NOVORAPID [Concomitant]
     Active Substance: INSULIN ASPART
     Indication: TYPE 2 DIABETES MELLITUS
     Dosage: UNK

REACTIONS (12)
  - Diabetes mellitus inadequate control [Recovering/Resolving]
  - Depressed level of consciousness [Unknown]
  - Blood glucose increased [Recovering/Resolving]
  - Incorrect dose administered [Unknown]
  - Dizziness [Recovered/Resolved]
  - Thrombosis [Unknown]
  - Diet noncompliance [Recovering/Resolving]
  - Agitation [Unknown]
  - Hypoglycaemia [Recovered/Resolved]
  - Memory impairment [Unknown]
  - Depressed mood [Unknown]
  - Cerebrovascular accident [Unknown]
